FAERS Safety Report 8617262-7 (Version None)
Quarter: 2012Q3

REPORT INFORMATION
  Report Type: 
  Country: None (occurrence: None)
  Receive Date: 20120823
  Receipt Date: 20120810
  Transmission Date: 20120928
  Serious: No
  Sender: FDA-Public Use
  Company Number: US-ASTRAZENECA-2012SE56913

PATIENT
  Age: 47 Year
  Sex: Female

DRUGS (2)
  1. OMEPRAZOLE [Suspect]
     Route: 048
  2. ESOMEPRAZOLE SODIUM [Suspect]
     Route: 048

REACTIONS (3)
  - EROSIVE OESOPHAGITIS [None]
  - HELICOBACTER INFECTION [None]
  - DRUG INEFFECTIVE [None]
